FAERS Safety Report 19080655 (Version 3)
Quarter: 2023Q4

REPORT INFORMATION
  Report Type: Spontaneous
  Country: US (occurrence: US)
  Receive Date: 20210331
  Receipt Date: 20231023
  Transmission Date: 20240109
  Serious: Yes (Hospitalization, Other)
  Sender: FDA-Public Use
  Company Number: US-GILEAD-2021-0523123

PATIENT
  Sex: Male
  Weight: 110 kg

DRUGS (30)
  1. VIREAD [Suspect]
     Active Substance: TENOFOVIR DISOPROXIL FUMARATE
     Indication: HIV infection
     Dosage: UNK
     Route: 048
     Dates: start: 2003
  2. TRUVADA [Suspect]
     Active Substance: EMTRICITABINE\TENOFOVIR DISOPROXIL FUMARATE
     Indication: HIV infection
     Dosage: UNK
     Route: 048
     Dates: start: 2003
  3. TRUVADA [Suspect]
     Active Substance: EMTRICITABINE\TENOFOVIR DISOPROXIL FUMARATE
     Dosage: UNK
     Route: 048
     Dates: start: 2004, end: 201504
  4. TRUVADA [Suspect]
     Active Substance: EMTRICITABINE\TENOFOVIR DISOPROXIL FUMARATE
     Dosage: UNK
     Route: 048
     Dates: start: 201504, end: 201611
  5. TRUVADA [Suspect]
     Active Substance: EMTRICITABINE\TENOFOVIR DISOPROXIL FUMARATE
     Dosage: UNK
     Route: 048
     Dates: start: 201611, end: 2017
  6. BIKTARVY [Concomitant]
     Active Substance: BICTEGRAVIR SODIUM\EMTRICITABINE\TENOFOVIR ALAFENAMIDE FUMARATE
  7. COMBIVIR [Concomitant]
     Active Substance: LAMIVUDINE\ZIDOVUDINE
  8. CRIXIVAN [Concomitant]
     Active Substance: INDINAVIR SULFATE
  9. EPIVIR [Concomitant]
     Active Substance: LAMIVUDINE
  10. INVIRASE [Concomitant]
     Active Substance: SAQUINAVIR MESYLATE
  11. KALETRA [Concomitant]
     Active Substance: LOPINAVIR\RITONAVIR
  12. NORVIR [Concomitant]
     Active Substance: RITONAVIR
  13. PREZISTA [Concomitant]
     Active Substance: DARUNAVIR ETHANOLATE
  14. RETROVIR [Concomitant]
     Active Substance: ZIDOVUDINE
  15. REYATAZ [Concomitant]
     Active Substance: ATAZANAVIR SULFATE
  16. SUSTIVA [Concomitant]
     Active Substance: EFAVIRENZ
  17. TIVICAY [Concomitant]
     Active Substance: DOLUTEGRAVIR SODIUM
  18. VIDEX [Concomitant]
     Active Substance: DIDANOSINE
  19. VIRACEPT [Concomitant]
     Active Substance: NELFINAVIR MESYLATE
  20. ZIAGEN [Concomitant]
     Active Substance: ABACAVIR SULFATE
  21. ZERIT [Concomitant]
     Active Substance: STAVUDINE
  22. ASPIRIN [Concomitant]
     Active Substance: ASPIRIN
  23. ATORVASTATIN [Concomitant]
     Active Substance: ATORVASTATIN
  24. COLCHICINE [Concomitant]
     Active Substance: COLCHICINE
  25. ALUMINUM HYDROXIDE\DICYCLOMINE HYDROCHLORIDE\MAGNESIUM OXIDE [Concomitant]
     Active Substance: ALUMINUM HYDROXIDE\DICYCLOMINE HYDROCHLORIDE\MAGNESIUM OXIDE
  26. LISINOPRIL [Concomitant]
     Active Substance: LISINOPRIL
  27. METOPROLOL [Concomitant]
     Active Substance: METOPROLOL
  28. MIRALAX [Concomitant]
     Active Substance: POLYETHYLENE GLYCOL 3350
  29. ALBUTEROL [Concomitant]
     Active Substance: ALBUTEROL
  30. TADALAFIL [Concomitant]
     Active Substance: TADALAFIL

REACTIONS (14)
  - Osteoporosis [Not Recovered/Not Resolved]
  - Spinal fracture [Unknown]
  - Skeletal injury [Unknown]
  - Ankle fracture [Unknown]
  - Hip arthroplasty [Unknown]
  - Shoulder arthroplasty [Unknown]
  - Emotional distress [Not Recovered/Not Resolved]
  - Anhedonia [Not Recovered/Not Resolved]
  - Pain [Not Recovered/Not Resolved]
  - Anxiety [Not Recovered/Not Resolved]
  - Osteopenia [Not Recovered/Not Resolved]
  - Gait disturbance [Unknown]
  - Joint range of motion decreased [Unknown]
  - Dysstasia [Unknown]

NARRATIVE: CASE EVENT DATE: 20090101
